FAERS Safety Report 5809754-0 (Version None)
Quarter: 2008Q3

REPORT INFORMATION
  Report Type: 
  Country: None (occurrence: None)
  Receive Date: 20080715
  Receipt Date: 20080709
  Transmission Date: 20090109
  Serious: Yes (Death)
  Sender: FDA-Public Use
  Company Number: JP-AVENTIS-200812135JP

PATIENT
  Age: 70 Year
  Sex: Male

DRUGS (3)
  1. TAXOTERE [Suspect]
     Indication: ANGIOSARCOMA
  2. RADIOTHERAPY [Concomitant]
     Indication: ANGIOSARCOMA
  3. PROLEUKIN [Concomitant]
     Indication: ANGIOSARCOMA

REACTIONS (3)
  - CARDIAC FAILURE [None]
  - PLEURAL EFFUSION [None]
  - RESPIRATORY DISTRESS [None]
